FAERS Safety Report 21582079 (Version 1)
Quarter: 2022Q4

REPORT INFORMATION
  Report Type: Spontaneous
  Country: CZ (occurrence: None)
  Receive Date: 20221111
  Receipt Date: 20221111
  Transmission Date: 20230113
  Serious: Yes (Hospitalization)
  Sender: FDA-Public Use
  Company Number: CZ-MEDAC-2022001640

PATIENT
  Age: 65 Year
  Sex: Female
  Weight: 70 kg

DRUGS (24)
  1. RITUXIMAB [Suspect]
     Active Substance: RITUXIMAB
     Indication: Diffuse large B-cell lymphoma stage III
     Dosage: RE-PRIMING DOSE, MOST RECENT DOSE ADMINISTERED ON 22/APR/2022
     Route: 041
     Dates: start: 20220422
  2. RITUXIMAB [Suspect]
     Active Substance: RITUXIMAB
     Dosage: REGIMEN #1
     Route: 041
     Dates: start: 20220401, end: 20220401
  3. CYCLOPHOSPHAMIDE [Suspect]
     Active Substance: CYCLOPHOSPHAMIDE
     Indication: Diffuse large B-cell lymphoma stage III
     Dosage: RE-PRIMING DOSE, MOST RECENT DOSE ADMINISTERED ON 22/APR/2022
     Route: 065
     Dates: start: 20220422
  4. CYCLOPHOSPHAMIDE [Suspect]
     Active Substance: CYCLOPHOSPHAMIDE
     Dosage: REGIMEN #1
     Route: 065
     Dates: start: 20220401, end: 20220401
  5. DOXORUBICIN HYDROCHLORIDE [Suspect]
     Active Substance: DOXORUBICIN HYDROCHLORIDE
     Indication: Diffuse large B-cell lymphoma stage III
     Dosage: RE-PRIMING DOSE, MOST RECENT DOSE ADMINISTERED ON 22/APR/2022
     Route: 065
     Dates: start: 20220422
  6. DOXORUBICIN HYDROCHLORIDE [Suspect]
     Active Substance: DOXORUBICIN HYDROCHLORIDE
     Dosage: REGIMEN #1
     Route: 065
     Dates: start: 20220401, end: 20220401
  7. VINCRISTINE [Suspect]
     Active Substance: VINCRISTINE
     Indication: Diffuse large B-cell lymphoma stage III
     Dosage: REGIMEN #1
     Route: 065
     Dates: start: 20220401, end: 20220401
  8. VINCRISTINE [Suspect]
     Active Substance: VINCRISTINE
     Dosage: RE-PRIMING DOSE, MOST RECENT DOSE ADMINISTERED ON 22/APR/2022
     Route: 065
     Dates: start: 20220422
  9. PREDNISONE [Suspect]
     Active Substance: PREDNISONE
     Indication: Diffuse large B-cell lymphoma stage III
     Route: 065
     Dates: start: 20220423, end: 20220426
  10. PREDNISONE [Suspect]
     Active Substance: PREDNISONE
     Dosage: REGIMEN #1
     Route: 065
     Dates: start: 20220402, end: 20220406
  11. EPCORITAMAB [Suspect]
     Active Substance: EPCORITAMAB
     Indication: Diffuse large B-cell lymphoma stage III
     Dosage: REGIMEN #1
     Route: 065
     Dates: start: 20220401, end: 20220401
  12. EPCORITAMAB [Suspect]
     Active Substance: EPCORITAMAB
     Dosage: RE-PRIMING DOSE, MOST RECENT DOSE ADMINISTERED ON 22/APR/2022
     Route: 065
     Dates: start: 20220422
  13. LEVOTHYROXINE SODIUM [Concomitant]
     Active Substance: LEVOTHYROXINE SODIUM
     Dates: start: 2006
  14. PARALEN (CZECH REPUBLIC) [Concomitant]
     Dates: start: 20220401, end: 20220401
  15. BISULEPIN [Concomitant]
     Active Substance: BISULEPIN
     Dates: start: 20220401, end: 20220401
  16. NEBIVOLOL [Concomitant]
     Active Substance: NEBIVOLOL
     Dates: start: 2010
  17. ONDANSETRON [Concomitant]
     Active Substance: ONDANSETRON
     Dates: start: 20220401, end: 20220401
  18. AMOXICILLIN\CLAVULANATE POTASSIUM [Concomitant]
     Active Substance: AMOXICILLIN\CLAVULANATE POTASSIUM
     Indication: Neutropenia
     Dates: start: 20220409, end: 20220416
  19. HYDROCHLOROTHIAZIDE\VALSARTAN [Concomitant]
     Active Substance: HYDROCHLOROTHIAZIDE\VALSARTAN
     Dates: start: 2010
  20. ATORVASTATIN CALCIUM [Concomitant]
     Active Substance: ATORVASTATIN CALCIUM
     Dates: start: 2019
  21. FLUCONAZOLE [Concomitant]
     Active Substance: FLUCONAZOLE
  22. SOLU-MEDROL [Concomitant]
     Active Substance: METHYLPREDNISOLONE SODIUM SUCCINATE
     Dates: start: 20220401, end: 20220401
  23. SOLU-MEDROL [Concomitant]
     Active Substance: METHYLPREDNISOLONE SODIUM SUCCINATE
     Dosage: RE-PRIMING DOSE
     Dates: start: 20220422, end: 20220422
  24. GENTAMICIN [Concomitant]
     Active Substance: GENTAMICIN

REACTIONS (1)
  - Dyspepsia [Recovered/Resolved]

NARRATIVE: CASE EVENT DATE: 20220405
